FAERS Safety Report 12110750 (Version 1)
Quarter: 2016Q1

REPORT INFORMATION
  Report Type: Report from Study
  Country: NL (occurrence: NL)
  Receive Date: 20160224
  Receipt Date: 20160224
  Transmission Date: 20160526
  Serious: Yes (Death, Other)
  Sender: FDA-Public Use
  Company Number: NL-BRISTOL-MYERS SQUIBB COMPANY-BMS-2016-012293

PATIENT

DRUGS (5)
  1. EXTERNAL-RITUXIMAB [Suspect]
     Active Substance: RITUXIMAB
     Indication: B-CELL LYMPHOMA
     Dosage: 375 MG/M2, QCYCLE
     Route: 042
  2. LOMUSTINE. [Suspect]
     Active Substance: LOMUSTINE
     Indication: B-CELL LYMPHOMA
     Dosage: 80 MG/M2, QCYCLE
     Route: 048
  3. EXTERNAL-PREDNISONE [Suspect]
     Active Substance: PREDNISONE
     Indication: B-CELL LYMPHOMA
     Dosage: 40 MG/M2, QCYCLE
     Route: 048
  4. ETOPOSIDE PHOSPHATE [Suspect]
     Active Substance: ETOPOSIDE PHOSPHATE
     Indication: B-CELL LYMPHOMA
     Dosage: 100 MG/M2, QCYCLE
     Route: 048
  5. IBRITUMOMAB TIUXETAN [Concomitant]
     Active Substance: IBRITUMOMAB TIUXETAN
     Indication: B-CELL LYMPHOMA
     Dosage: 15 MBQ/KG, ONE TIME DOSE
     Route: 065

REACTIONS (2)
  - Sepsis [Fatal]
  - Pneumonia [Fatal]
